FAERS Safety Report 10762559 (Version 1)
Quarter: 2015Q1

REPORT INFORMATION
  Report Type: Spontaneous
  Country: US (occurrence: None)
  Receive Date: 20150129
  Receipt Date: 20150129
  Transmission Date: 20150721
  Serious: Yes (Other)
  Sender: FDA-Public Use
  Company Number: 122749

PATIENT
  Sex: Male
  Weight: 83.9 kg

DRUGS (2)
  1. DEPAKOTE [Concomitant]
     Active Substance: DIVALPROEX SODIUM
  2. KEPPRA XR [Suspect]
     Active Substance: LEVETIRACETAM
     Indication: SEIZURE
     Dosage: 500MG 2 TABLETS TWICE DAILY

REACTIONS (2)
  - Inappropriate schedule of drug administration [None]
  - Generalised tonic-clonic seizure [None]
